FAERS Safety Report 10872299 (Version 1)
Quarter: 2015Q1

REPORT INFORMATION
  Report Type: Spontaneous
  Country: US (occurrence: None)
  Receive Date: 20150220
  Receipt Date: 20150220
  Transmission Date: 20150721
  Serious: Yes (Disabling, Other)
  Sender: FDA-Public Use
  Company Number: None

PATIENT
  Age: 63 Year
  Sex: Female
  Weight: 56.7 kg

DRUGS (2)
  1. BOTOX [Suspect]
     Active Substance: ONABOTULINUMTOXINA
     Indication: MIGRAINE
     Dates: start: 20140228
  2. BOTOX [Suspect]
     Active Substance: ONABOTULINUMTOXINA
     Indication: MIGRAINE
     Dates: start: 20140604

REACTIONS (11)
  - Muscle spasms [None]
  - Dyspnoea [None]
  - Dry eye [None]
  - Lacrimation increased [None]
  - Inflammation [None]
  - Headache [None]
  - Neck pain [None]
  - Pain in jaw [None]
  - Pain [None]
  - Neuropathy peripheral [None]
  - Haemorrhage [None]

NARRATIVE: CASE EVENT DATE: 20140228
